FAERS Safety Report 24107244 (Version 2)
Quarter: 2024Q3

REPORT INFORMATION
  Report Type: Spontaneous
  Country: JP (occurrence: JP)
  Receive Date: 20240718
  Receipt Date: 20240905
  Transmission Date: 20241017
  Serious: Yes (Other)
  Sender: JOHNSON AND JOHNSON
  Company Number: JP-JNJFOC-20240744944

PATIENT
  Sex: Male

DRUGS (7)
  1. REMICADE [Suspect]
     Active Substance: INFLIXIMAB
     Indication: Psoriasis
     Route: 041
  2. OTEZLA [Suspect]
     Active Substance: APREMILAST
     Indication: Psoriasis
     Route: 048
     Dates: start: 20200118
  3. OTEZLA [Suspect]
     Active Substance: APREMILAST
     Route: 048
     Dates: start: 20211022
  4. CELECOXIB [Concomitant]
     Active Substance: CELECOXIB
     Dosage: DATE OF ADMINISTRATION: 05-JUN-2019
  5. HUMIRA [Concomitant]
     Active Substance: ADALIMUMAB
  6. TREMFYA [Concomitant]
     Active Substance: GUSELKUMAB
  7. SKYRIZI [Concomitant]
     Active Substance: RISANKIZUMAB-RZAA

REACTIONS (5)
  - Renal impairment [Unknown]
  - Lung neoplasm malignant [Unknown]
  - Interstitial lung disease [Unknown]
  - Psoriasis [Unknown]
  - Drug ineffective [Unknown]

NARRATIVE: CASE EVENT DATE: 20200601
